FAERS Safety Report 25227243 (Version 1)
Quarter: 2025Q2

REPORT INFORMATION
  Report Type: Spontaneous
  Country: AR (occurrence: AR)
  Receive Date: 20250422
  Receipt Date: 20250422
  Transmission Date: 20250717
  Serious: Yes (Other)
  Sender: BIOMARIN
  Company Number: AR-BIOMARINAP-AR-2025-165323

PATIENT

DRUGS (1)
  1. NAGLAZYME [Suspect]
     Active Substance: GALSULFASE
     Indication: Mucopolysaccharidosis VI
     Dosage: 6 UNK, QW
     Route: 042
     Dates: start: 20150101

REACTIONS (1)
  - Ovarian neoplasm [Not Recovered/Not Resolved]

NARRATIVE: CASE EVENT DATE: 20250411
